FAERS Safety Report 5241109-2 (Version None)
Quarter: 2007Q1

REPORT INFORMATION
  Report Type: 
  Country: None (occurrence: None)
  Receive Date: 20070214
  Receipt Date: 20070214
  Transmission Date: 20070707
  Serious: Yes (Other)
  Sender: FDA-Public Use
  Company Number: None

PATIENT
  Age: 57 Year
  Sex: Female
  Weight: 90.7194 kg

DRUGS (1)
  1. PHENYTOIN [Suspect]
     Indication: PETIT MAL EPILEPSY
     Dosage: 2 CAPSULES 3 TIMES A DAY.

REACTIONS (1)
  - ANTICONVULSANT DRUG LEVEL DECREASED [None]
